FAERS Safety Report 22283448 (Version 1)
Quarter: 2023Q2

REPORT INFORMATION
  Report Type: Spontaneous
  Country: US (occurrence: US)
  Receive Date: 20230504
  Receipt Date: 20230504
  Transmission Date: 20230721
  Serious: Yes (Other)
  Sender: FDA-Public Use
  Company Number: US-IGSA-BIG0023205

PATIENT
  Age: 61 Year
  Sex: Female

DRUGS (1)
  1. GAMUNEX-C [Suspect]
     Active Substance: HUMAN IMMUNOGLOBULIN G
     Indication: Primary immunodeficiency syndrome
     Dosage: UNK, Q.M.T.
     Route: 042
     Dates: start: 202304

REACTIONS (1)
  - Hypertensive emergency [Unknown]

NARRATIVE: CASE EVENT DATE: 20230401
